FAERS Safety Report 8193786-4 (Version None)
Quarter: 2012Q1

REPORT INFORMATION
  Report Type: 
  Country: None (occurrence: None)
  Receive Date: 20120308
  Receipt Date: 20120305
  Transmission Date: 20120608
  Serious: Yes (Other)
  Sender: FDA-Public Use
  Company Number: US-PFIZER INC-2012058875

PATIENT
  Sex: Female
  Weight: 86.168 kg

DRUGS (4)
  1. LYRICA [Suspect]
     Indication: NEUROPATHY PERIPHERAL
     Dosage: 50 MG, 1X/DAY
     Route: 048
  2. LYRICA [Suspect]
     Route: 048
  3. CALCITRIOL [Concomitant]
     Dosage: 0.35 UG, 3X/WEEK
  4. VITAMIN D [Concomitant]
     Dosage: 50000 IU, WEEKLY

REACTIONS (2)
  - RENAL FAILURE [None]
  - WEIGHT INCREASED [None]
